FAERS Safety Report 8899816 (Version 1)
Quarter: 2012Q4

REPORT INFORMATION
  Report Type: 
  Country: US (occurrence: US)
  Receive Date: 20121108
  Receipt Date: 20121108
  Transmission Date: 20130627
  Serious: No
  Sender: FDA-Public Use
  Company Number: US-AMGEN-USASP2012036775

PATIENT
  Age: 60 Year
  Sex: Female
  Weight: 72.56 kg

DRUGS (6)
  1. ENBREL [Suspect]
     Indication: PRODUCT USED FOR UNKNOWN INDICATION
     Dosage: 50 mg, qwk
     Route: 058
  2. FOLIC ACID [Concomitant]
     Dosage: 1 mg, UNK
  3. SIMVASTATIN [Concomitant]
     Dosage: 40 mg, UNK
  4. OMEGA 3                            /01334101/ [Concomitant]
     Dosage: 1200 mg, UNK
  5. CALCIUM CITRATE + D [Concomitant]
  6. ASA [Concomitant]
     Dosage: 81 mg, UNK

REACTIONS (1)
  - Ear infection [Unknown]
